FAERS Safety Report 13341550 (Version 1)
Quarter: 2017Q1

REPORT INFORMATION
  Report Type: Spontaneous
  Country: US (occurrence: US)
  Receive Date: 20170315
  Receipt Date: 20170315
  Transmission Date: 20170428
  Serious: Yes (Death)
  Sender: FDA-Public Use
  Company Number: None

PATIENT
  Age: 64 Year
  Sex: Female

DRUGS (1)
  1. SUTENT [Suspect]
     Active Substance: SUNITINIB MALATE
     Indication: NEOPLASM MALIGNANT
     Dosage: 50 MG DAILY (4 WEEKS ON 2 WEEKS OFF) BY MOUTH
     Route: 048
     Dates: start: 20161003, end: 20170228

REACTIONS (2)
  - Disease complication [None]
  - Renal cell carcinoma [None]

NARRATIVE: CASE EVENT DATE: 20170304
